FAERS Safety Report 22647964 (Version 1)
Quarter: 2023Q2

REPORT INFORMATION
  Report Type: Spontaneous
  Country: CN (occurrence: CN)
  Receive Date: 20230628
  Receipt Date: 20230628
  Transmission Date: 20230721
  Serious: Yes (Hospitalization)
  Sender: FDA-Public Use
  Company Number: CN-JNJFOC-20230646284

PATIENT
  Age: 67 Year
  Sex: Female

DRUGS (4)
  1. TRACLEER [Suspect]
     Active Substance: BOSENTAN
     Indication: Pulmonary hypertension
     Route: 048
     Dates: start: 201906
  2. TRACLEER [Suspect]
     Active Substance: BOSENTAN
     Indication: Raynaud^s phenomenon
     Route: 048
     Dates: start: 20230415, end: 20230422
  3. MEDROL [Concomitant]
     Active Substance: METHYLPREDNISOLONE
  4. CYCLOPHOSPHAMIDE [Concomitant]
     Active Substance: CYCLOPHOSPHAMIDE
     Dosage: 2 TABLETS QOD

REACTIONS (6)
  - Primary biliary cholangitis [Recovering/Resolving]
  - Liver injury [Recovering/Resolving]
  - Nasopharyngitis [Unknown]
  - Skin discolouration [Unknown]
  - Peripheral coldness [Unknown]
  - Off label use [Unknown]

NARRATIVE: CASE EVENT DATE: 20230201
